FAERS Safety Report 15060020 (Version 1)
Quarter: 2018Q2

REPORT INFORMATION
  Report Type: Spontaneous
  Country: DE (occurrence: DE)
  Receive Date: 20180625
  Receipt Date: 20180625
  Transmission Date: 20180711
  Serious: Yes (Other)
  Sender: FDA-Public Use
  Company Number: PHHY2018DE028382

PATIENT
  Age: 46 Year
  Sex: Female

DRUGS (4)
  1. DOCETAXEL. [Suspect]
     Active Substance: DOCETAXEL
     Dosage: 75 MG/M2, TIW
     Route: 042
     Dates: start: 20170926
  2. DOCETAXEL. [Suspect]
     Active Substance: DOCETAXEL
     Indication: BREAST CANCER METASTATIC
     Dosage: 60 MG/M2, TIW
     Route: 042
  3. PERTUZUMAB. [Suspect]
     Active Substance: PERTUZUMAB
     Indication: BREAST CANCER METASTATIC
     Dosage: 420 MG, TIW
     Route: 042
     Dates: start: 20170926
  4. TRASTUZUMAB. [Suspect]
     Active Substance: TRASTUZUMAB
     Indication: BREAST CANCER METASTATIC
     Dosage: 6 MG/KG, TIW
     Route: 042
     Dates: start: 20170926

REACTIONS (11)
  - Arthralgia [Unknown]
  - Diarrhoea [Unknown]
  - Stomatitis [Unknown]
  - Fatigue [Unknown]
  - Nail dystrophy [Unknown]
  - Nausea [Unknown]
  - Back pain [Unknown]
  - Nail infection [Unknown]
  - Febrile neutropenia [Unknown]
  - Peripheral sensory neuropathy [Unknown]
  - Myalgia [Unknown]

NARRATIVE: CASE EVENT DATE: 20170926
